FAERS Safety Report 16227689 (Version 2)
Quarter: 2019Q2

REPORT INFORMATION
  Report Type: Spontaneous
  Country: US (occurrence: US)
  Receive Date: 20190423
  Receipt Date: 20190619
  Transmission Date: 20190711
  Serious: No
  Sender: FDA-Public Use
  Company Number: US-PFIZER INC-2019169966

PATIENT
  Age: 66 Year
  Sex: Female

DRUGS (1)
  1. TALWIN [Suspect]
     Active Substance: PENTAZOCINE LACTATE
     Indication: PAIN
     Dosage: 1 DF, UNK
     Route: 048

REACTIONS (3)
  - Mental disorder [Unknown]
  - Hallucination [Unknown]
  - Drug hypersensitivity [Unknown]

NARRATIVE: CASE EVENT DATE: 20161011
